FAERS Safety Report 4413868-X (Version None)
Quarter: 2004Q3

REPORT INFORMATION
  Report Type: 
  Country: None (occurrence: None)
  Receive Date: 20040802
  Receipt Date: 20040802
  Transmission Date: 20050211
  Serious: No
  Sender: FDA-Public Use
  Company Number: None

PATIENT
  Age: 41 Year
  Sex: Male
  Weight: 91.173 kg

DRUGS (8)
  1. TRIZIVIR [Suspect]
     Indication: HIV INFECTION
     Dosage: 1 TAB PO BID
     Route: 048
  2. METOPROLOL [Concomitant]
  3. LISINOPRIL [Concomitant]
  4. OMEPRAZOLE [Concomitant]
  5. ADVAIR [Concomitant]
  6. LORTAB [Concomitant]
  7. XANAX [Concomitant]
  8. GABAPENTIN [Concomitant]

REACTIONS (2)
  - HYPOTENSION [None]
  - PNEUMONIA LEGIONELLA [None]
